FAERS Safety Report 4478185-0 (Version None)
Quarter: 2004Q3

REPORT INFORMATION
  Report Type: 
  Country: None (occurrence: None)
  Receive Date: 20040923
  Receipt Date: 20040721
  Transmission Date: 20050211
  Serious: No
  Sender: FDA-Public Use
  Company Number: USA040773331

PATIENT
  Age: 50 Year
  Sex: Male

DRUGS (8)
  1. FORTEO [Suspect]
     Indication: OSTEOPOROSIS
     Dates: start: 20040501
  2. NORVASC [Concomitant]
  3. NAPROXEN SODIUM [Concomitant]
  4. GEMFIBROZIL [Concomitant]
  5. HYDROCODONE [Concomitant]
  6. ESTAZOLAM [Concomitant]
  7. CALCIUM [Concomitant]
  8. ZOLOFT [Concomitant]

REACTIONS (1)
  - TREMOR [None]
